FAERS Safety Report 8308463-6 (Version None)
Quarter: 2012Q2

REPORT INFORMATION
  Report Type: 
  Country: None (occurrence: None)
  Receive Date: 20120420
  Receipt Date: 20120409
  Transmission Date: 20120825
  Serious: Yes (Hospitalization, Other)
  Sender: FDA-Public Use
  Company Number: AUR-APL-2012-01772

PATIENT
  Age: 50 Year
  Sex: Male

DRUGS (5)
  1. LEVOTHYROXINE SODIUM [Concomitant]
  2. ATORVASTATIN [Concomitant]
  3. METFORMIN HCL [Concomitant]
  4. SERTRALINE HYDROCHLORIDE [Suspect]
     Indication: DEPRESSION
     Dosage: (50 MG, 1 D),
  5. VENLAFAXINE [Suspect]
     Indication: DEPRESSION
     Dosage: (75 MG)

REACTIONS (11)
  - PERIPHERAL COLDNESS [None]
  - MUSCLE RIGIDITY [None]
  - TREMOR [None]
  - AGITATION [None]
  - BLOOD GLUCOSE FLUCTUATION [None]
  - BLOOD PRESSURE FLUCTUATION [None]
  - NO THERAPEUTIC RESPONSE [None]
  - HYPERHIDROSIS [None]
  - HEART RATE ABNORMAL [None]
  - SEROTONIN SYNDROME [None]
  - ANXIETY [None]
